FAERS Safety Report 4739938-4 (Version None)
Quarter: 2005Q3

REPORT INFORMATION
  Report Type: 
  Country: None (occurrence: None)
  Receive Date: 20050810
  Receipt Date: 20030923
  Transmission Date: 20060218
  Serious: No
  Sender: FDA-Public Use
  Company Number: US-GLAXOSMITHKLINE-A0428615A

PATIENT
  Age: 26 Year
  Sex: Female
  Weight: 90.9 kg

DRUGS (3)
  1. PAXIL [Suspect]
     Indication: DEPRESSION
     Dosage: 30MG PER DAY
     Route: 048
  2. BIRTH CONTROL PILLS [Concomitant]
  3. WELLBUTRIN [Concomitant]
     Indication: DRUG USE FOR UNKNOWN INDICATION
     Route: 065

REACTIONS (8)
  - CHOREA [None]
  - DRUG WITHDRAWAL SYNDROME [None]
  - DYSKINESIA [None]
  - DYSPHEMIA [None]
  - DYSPNOEA [None]
  - DYSTONIA [None]
  - MOVEMENT DISORDER [None]
  - TARDIVE DYSKINESIA [None]
